FAERS Safety Report 5360035-1 (Version None)
Quarter: 2007Q2

REPORT INFORMATION
  Report Type: 
  Country: None (occurrence: None)
  Receive Date: 20070614
  Receipt Date: 20070607
  Transmission Date: 20071010
  Serious: Yes (Hospitalization)
  Sender: FDA-Public Use
  Company Number: 2007-02749

PATIENT
  Age: 14 Year
  Sex: Male
  Weight: 75 kg

DRUGS (1)
  1. IBUPROFEN [Suspect]
     Indication: INTENTIONAL OVERDOSE
     Dosage: 50 G, SINGLE, UNK

REACTIONS (10)
  - APNOEA [None]
  - BLOOD LACTIC ACID INCREASED [None]
  - CIRCULATORY COLLAPSE [None]
  - DRUG TOXICITY [None]
  - GASTRIC HAEMORRHAGE [None]
  - HYPOTENSION [None]
  - LOSS OF CONSCIOUSNESS [None]
  - METABOLIC ACIDOSIS [None]
  - PULMONARY HAEMORRHAGE [None]
  - RENAL FAILURE ACUTE [None]
